FAERS Safety Report 9723820 (Version 2)
Quarter: 2013Q4

REPORT INFORMATION
  Report Type: Spontaneous
  Country: DE (occurrence: DE)
  Receive Date: 20131202
  Receipt Date: 20131231
  Transmission Date: 20140711
  Serious: Yes (Other)
  Sender: FDA-Public Use
  Company Number: DE-MALLINCKRODT-T201305014

PATIENT
  Age: 80 Year
  Sex: Male

DRUGS (1)
  1. EXALGO [Suspect]
     Indication: PRODUCT USED FOR UNKNOWN INDICATION
     Dosage: 640 MG, 1 IN 1 TOTAL (40 TABS)
     Route: 048
     Dates: start: 20131119, end: 20131119

REACTIONS (2)
  - Suicide attempt [Unknown]
  - Intentional overdose [Unknown]
